FAERS Safety Report 26108660 (Version 1)
Quarter: 2025Q4

REPORT INFORMATION
  Report Type: Report from Study
  Country: US (occurrence: US)
  Receive Date: 20251201
  Receipt Date: 20251201
  Transmission Date: 20260118
  Serious: Yes (Other)
  Sender: MYLAN
  Company Number: US-MYLANLABS-2025M1100948

PATIENT
  Age: 82 Year
  Sex: Male
  Weight: 112.5 kg

DRUGS (4)
  1. YUPELRI [Suspect]
     Active Substance: REVEFENACIN
     Indication: Chronic obstructive pulmonary disease
     Dosage: 175 MICROGRAM PER 3 MILLILITRE, QD(ONCE DAILY VIA NEBULIZER (MORNING AND EVENING)
     Dates: start: 20251002, end: 20251117
  2. YUPELRI [Suspect]
     Active Substance: REVEFENACIN
     Dosage: 175 MICROGRAM PER 3 MILLILITRE, QD(ONCE DAILY VIA NEBULIZER (MORNING AND EVENING)
     Route: 055
     Dates: start: 20251002, end: 20251117
  3. YUPELRI [Suspect]
     Active Substance: REVEFENACIN
     Dosage: 175 MICROGRAM PER 3 MILLILITRE, QD(ONCE DAILY VIA NEBULIZER (MORNING AND EVENING)
     Route: 055
     Dates: start: 20251002, end: 20251117
  4. YUPELRI [Suspect]
     Active Substance: REVEFENACIN
     Dosage: 175 MICROGRAM PER 3 MILLILITRE, QD(ONCE DAILY VIA NEBULIZER (MORNING AND EVENING)
     Dates: start: 20251002, end: 20251117

REACTIONS (2)
  - Lacrimation increased [Recovered/Resolved]
  - Pruritus [Recovered/Resolved]

NARRATIVE: CASE EVENT DATE: 20251103
